FAERS Safety Report 23809528 (Version 1)
Quarter: 2024Q2

REPORT INFORMATION
  Report Type: Spontaneous
  Country: US (occurrence: US)
  Receive Date: 20240502
  Receipt Date: 20240502
  Transmission Date: 20240715
  Serious: No
  Sender: FDA-Public Use
  Company Number: US-ELI_LILLY_AND_COMPANY-US202405000325

PATIENT
  Age: 60 Year
  Sex: Female

DRUGS (2)
  1. VERZENIO [Suspect]
     Active Substance: ABEMACICLIB
     Indication: Breast cancer
     Dosage: 100 MG, BID
     Route: 048
     Dates: start: 202306
  2. ANASTROZOLE [Concomitant]
     Active Substance: ANASTROZOLE
     Indication: Product used for unknown indication
     Dosage: UNK UNK, UNKNOWN

REACTIONS (4)
  - Flatulence [Not Recovered/Not Resolved]
  - Dyspnoea [Recovered/Resolved]
  - Lung opacity [Not Recovered/Not Resolved]
  - Diarrhoea [Recovered/Resolved]
